FAERS Safety Report 6250830-9 (Version None)
Quarter: 2009Q2

REPORT INFORMATION
  Report Type: 
  Country: None (occurrence: None)
  Receive Date: 20090630
  Receipt Date: 20090330
  Transmission Date: 20091009
  Serious: No
  Sender: FDA-Public Use
  Company Number: US-ABBOTT-09P-163-0565755-00

PATIENT
  Age: 75 Year
  Sex: Male

DRUGS (2)
  1. ZEMPLAR [Suspect]
     Indication: RENAL DISORDER
     Route: 048
     Dates: start: 20090322, end: 20090329
  2. FENTANYL-100 [Suspect]
     Indication: BACK PAIN
     Route: 061
     Dates: start: 20090301, end: 20090327

REACTIONS (7)
  - BLOOD PRESSURE INCREASED [None]
  - DIZZINESS [None]
  - DYSPHONIA [None]
  - DYSPNOEA [None]
  - EYE DISORDER [None]
  - PHARYNGEAL OEDEMA [None]
  - SWOLLEN TONGUE [None]
